FAERS Safety Report 10074074 (Version 2)
Quarter: 2014Q2

REPORT INFORMATION
  Report Type: Spontaneous
  Country: US (occurrence: US)
  Receive Date: 20140412
  Receipt Date: 20140506
  Transmission Date: 20141212
  Serious: No
  Sender: FDA-Public Use
  Company Number: US-009507513-1404USA003350

PATIENT
  Sex: Male

DRUGS (2)
  1. DULERA [Suspect]
     Dosage: UNK
  2. DULERA [Suspect]
     Dosage: UNK
     Dates: start: 201311

REACTIONS (4)
  - Drug dose omission [Unknown]
  - Incorrect dose administered [Unknown]
  - Product container issue [Unknown]
  - No adverse event [Unknown]
